FAERS Safety Report 9730565 (Version 1)
Quarter: 2013Q4

REPORT INFORMATION
  Report Type: Spontaneous
  Country: CA (occurrence: CA)
  Receive Date: 20131204
  Receipt Date: 20131204
  Transmission Date: 20140711
  Serious: Yes (Hospitalization)
  Sender: FDA-Public Use
  Company Number: CA-AMGEN-CANSP2013085236

PATIENT
  Age: 63 Year
  Sex: Female

DRUGS (5)
  1. ENBREL [Suspect]
     Indication: RHEUMATOID ARTHRITIS
     Dosage: 50 MG, UNK
     Route: 065
     Dates: start: 20110208
  2. METHOTREXATE [Concomitant]
     Dosage: UNK
  3. FOLIC ACID [Concomitant]
     Dosage: UNK
  4. DILAUDID [Concomitant]
     Dosage: UNK
  5. TYLENOL                            /00020001/ [Concomitant]
     Indication: PAIN
     Dosage: 325 MG, AS NECESSARY

REACTIONS (2)
  - Hip surgery [Not Recovered/Not Resolved]
  - Postoperative wound infection [Not Recovered/Not Resolved]
